FAERS Safety Report 15993314 (Version 3)
Quarter: 2019Q2

REPORT INFORMATION
  Report Type: Spontaneous
  Country: JP (occurrence: JP)
  Receive Date: 20190222
  Receipt Date: 20190430
  Transmission Date: 20190711
  Serious: Yes (Hospitalization)
  Sender: FDA-Public Use
  Company Number: PHHY2019JP009829

PATIENT
  Age: 86 Year
  Sex: Female
  Weight: 36 kg

DRUGS (1)
  1. RECLAST [Suspect]
     Active Substance: ZOLEDRONIC ACID
     Indication: OSTEOPOROSIS
     Dosage: 5 MG, Q12MO
     Route: 041
     Dates: start: 20181207, end: 20181207

REACTIONS (5)
  - Acute kidney injury [Not Recovered/Not Resolved]
  - Metabolic acidosis [Recovered/Resolved]
  - Hypothermia [Unknown]
  - Azotaemia [Recovered/Resolved]
  - Renal disorder [Not Recovered/Not Resolved]

NARRATIVE: CASE EVENT DATE: 20190105
